FAERS Safety Report 13402686 (Version 2)
Quarter: 2017Q2

REPORT INFORMATION
  Report Type: Report from Study
  Country: US (occurrence: US)
  Receive Date: 20170404
  Receipt Date: 20170419
  Transmission Date: 20170830
  Serious: Yes (Other)
  Sender: FDA-Public Use
  Company Number: US-JAZZ-2017-US-003043

PATIENT
  Sex: Female

DRUGS (4)
  1. XYREM [Suspect]
     Active Substance: SODIUM OXYBATE
     Dosage: 1.25 G, BID
     Route: 048
     Dates: start: 201703
  2. XYREM [Suspect]
     Active Substance: SODIUM OXYBATE
     Indication: CATAPLEXY
     Dosage: 0.625 G, BID
     Route: 048
     Dates: start: 201703, end: 2017
  3. EFFEXOR [Suspect]
     Active Substance: VENLAFAXINE HYDROCHLORIDE
     Indication: CATAPLEXY
  4. MODAFINIL. [Concomitant]
     Active Substance: MODAFINIL
     Indication: NARCOLEPSY
     Dosage: 200 MG, BID

REACTIONS (9)
  - Cerebral disorder [Unknown]
  - Incorrect dose administered [Unknown]
  - Dry eye [Unknown]
  - Amnesia [Unknown]
  - Drug use disorder [Unknown]
  - Eye swelling [Unknown]
  - Insomnia [Not Recovered/Not Resolved]
  - Confusional state [Unknown]
  - Condition aggravated [Not Recovered/Not Resolved]
